FAERS Safety Report 17388941 (Version 1)
Quarter: 2020Q1

REPORT INFORMATION
  Report Type: Spontaneous
  Country: US (occurrence: US)
  Receive Date: 20200123
  Receipt Date: 20200123
  Transmission Date: 20200409
  Serious: Yes (Hospitalization)
  Sender: FDA-Public Use
  Company Number: None

PATIENT
  Age: 80 Year
  Sex: Male

DRUGS (10)
  1. TAMSULOSIN CAP [Concomitant]
     Active Substance: TAMSULOSIN
  2. VENTOLIN [Concomitant]
     Active Substance: ALBUTEROL SULFATE
  3. ESBRIET [Suspect]
     Active Substance: PIRFENIDONE
     Indication: IDIOPATHIC PULMONARY FIBROSIS
     Route: 048
  4. ATORVASTATIN TAB [Concomitant]
     Active Substance: ATORVASTATIN
  5. ALBUTEROL NEB [Concomitant]
     Active Substance: ALBUTEROL
  6. ALLOPURINOL TAB [Concomitant]
     Active Substance: ALLOPURINOL
  7. INDOMETHACIN CAP [Concomitant]
  8. ASPIRIN TAB [Concomitant]
  9. ATENOLOL TAB [Concomitant]
     Active Substance: ATENOLOL
  10. OMEPRAZOLE CAR [Concomitant]

REACTIONS (1)
  - Lung disorder [None]

NARRATIVE: CASE EVENT DATE: 20200116
